FAERS Safety Report 8351950-5 (Version None)
Quarter: 2012Q2

REPORT INFORMATION
  Report Type: 
  Country: None (occurrence: None)
  Receive Date: 20120510
  Receipt Date: 20120510
  Transmission Date: 20120825
  Serious: Yes (Hospitalization)
  Sender: FDA-Public Use
  Company Number: None

PATIENT
  Sex: Female
  Weight: 83 kg

DRUGS (4)
  1. LEUCOVORIN CALCIUM [Suspect]
     Dosage: 2170 MG
  2. FLUOROURACIL [Suspect]
     Dosage: 15200 MG
  3. BEVACIZUMAB (RHUMAB VEGF) [Suspect]
     Dosage: 1270 MG
  4. ELOXATIN [Suspect]
     Dosage: 430 MG

REACTIONS (4)
  - WHITE BLOOD CELL COUNT DECREASED [None]
  - FEBRILE NEUTROPENIA [None]
  - HYPOKALAEMIA [None]
  - URINARY TRACT INFECTION [None]
